FAERS Safety Report 21619693 (Version 3)
Quarter: 2023Q1

REPORT INFORMATION
  Report Type: Report from Study
  Country: US (occurrence: US)
  Receive Date: 20221121
  Receipt Date: 20230209
  Transmission Date: 20230417
  Serious: Yes (Disabling, Other)
  Sender: FDA-Public Use
  Company Number: US-ABBVIE-4205619

PATIENT
  Sex: Female

DRUGS (1)
  1. CREON [Suspect]
     Active Substance: PANCRELIPASE AMYLASE\PANCRELIPASE LIPASE\PANCRELIPASE PROTEASE
     Indication: Product used for unknown indication
     Route: 048

REACTIONS (11)
  - Skin cancer [Unknown]
  - Intentional product use issue [Unknown]
  - Blood glucose decreased [Unknown]
  - Hypoglycaemia [Unknown]
  - Skin graft [Unknown]
  - Memory impairment [Unknown]
  - Eosinophilia myalgia syndrome [Unknown]
  - Chronic fatigue syndrome [Unknown]
  - Incorrect dose administered [Unknown]
  - Post viral fatigue syndrome [Unknown]
  - Disability [Unknown]
